FAERS Safety Report 10047516 (Version 3)
Quarter: 2016Q2

REPORT INFORMATION
  Report Type: Spontaneous
  Country: US (occurrence: US)
  Receive Date: 20140331
  Receipt Date: 20160601
  Transmission Date: 20160815
  Serious: Yes (Other)
  Sender: FDA-Public Use
  Company Number: US-SA-2014SA036805

PATIENT
  Sex: Male
  Weight: 86.18 kg

DRUGS (11)
  1. PLAVIX [Suspect]
     Active Substance: CLOPIDOGREL BISULFATE
     Indication: MYOCARDIAL INFARCTION
     Route: 048
  2. VITAMIN C [Concomitant]
     Active Substance: ASCORBIC ACID
  3. LIPITOR [Concomitant]
     Active Substance: ATORVASTATIN CALCIUM
  4. NEXIUM [Concomitant]
     Active Substance: ESOMEPRAZOLE MAGNESIUM
  5. COENZA Q [Concomitant]
  6. FOLIC ACID. [Concomitant]
     Active Substance: FOLIC ACID
  7. VITAMIN E [Concomitant]
     Active Substance: .ALPHA.-TOCOPHEROL
  8. BENICAR [Concomitant]
     Active Substance: OLMESARTAN MEDOXOMIL
  9. PANTHENOL/RETINOL/THIAMINE HYDROCHLORIDE/ASCORBIC ACID/ERGOCALCIFEROL/FOLIC ACID/RIBOFLAVIN/NICOTINA [Concomitant]
  10. HYDROCODONE [Concomitant]
     Active Substance: HYDROCODONE
  11. CALCIUM [Concomitant]
     Active Substance: CALCIUM

REACTIONS (8)
  - Skin cancer [Unknown]
  - Osteoarthritis [Unknown]
  - Bone disorder [Unknown]
  - Gastrooesophageal reflux disease [Unknown]
  - Cataract [Unknown]
  - Device failure [Unknown]
  - Tooth fracture [Unknown]
  - Drug dose omission [Unknown]
